FAERS Safety Report 5236794-5 (Version None)
Quarter: 2007Q1

REPORT INFORMATION
  Report Type: 
  Country: None (occurrence: None)
  Receive Date: 20061208
  Receipt Date: 20050728
  Transmission Date: 20070707
  Serious: Yes (Other)
  Sender: FDA-Public Use
  Company Number: 2005UW11190

PATIENT
  Age: 48 Year
  Sex: Male
  Weight: 90.718 kg

DRUGS (4)
  1. CRESTOR [Suspect]
     Indication: BLOOD CHOLESTEROL INCREASED
     Dosage: 10 MG  QD  PO
     Route: 048
  2. HYDROCHLOROTHIAZIDE [Concomitant]
  3. ASPIRIN [Concomitant]
  4. ZANTAC [Concomitant]

REACTIONS (2)
  - CONSTIPATION [None]
  - TINNITUS [None]
